FAERS Safety Report 4445985-2 (Version None)
Quarter: 2004Q3

REPORT INFORMATION
  Report Type: 
  Country: None (occurrence: None)
  Receive Date: 20040910
  Receipt Date: 20040804
  Transmission Date: 20050211
  Serious: Yes (Hospitalization)
  Sender: FDA-Public Use
  Company Number: IT-ROCHE-376531

PATIENT
  Age: 51 Year
  Sex: Female

DRUGS (2)
  1. PEG-INTERFERON ALFA 2A (RO 25-8310) [Suspect]
     Route: 058
     Dates: start: 20040120
  2. KETOPROFEN [Suspect]
     Dosage: DRUG NAME REPORTED AS 'IBIFEN'
     Route: 048
     Dates: start: 20040120

REACTIONS (1)
  - PARESIS CRANIAL NERVE [None]
